FAERS Safety Report 25532848 (Version 3)
Quarter: 2025Q4

REPORT INFORMATION
  Report Type: Spontaneous
  Country: US (occurrence: US)
  Receive Date: 20250709
  Receipt Date: 20251201
  Transmission Date: 20260119
  Serious: Yes (Death, Life-Threatening, Hospitalization, Other)
  Sender: ACCORD
  Company Number: US-Accord-493312

PATIENT
  Age: 75 Year
  Sex: Male
  Weight: 76.5 kg

DRUGS (13)
  1. CARBOPLATIN [Suspect]
     Active Substance: CARBOPLATIN
     Indication: Product used for unknown indication
     Dosage: Q3W
     Dates: start: 20250610, end: 20250610
  2. ETOPOSIDE [Suspect]
     Active Substance: ETOPOSIDE
     Indication: Product used for unknown indication
     Dosage: Q3W
     Dates: start: 20250611
  3. METOPROLOL [Concomitant]
     Active Substance: METOPROLOL
     Indication: Hypertension
     Dosage: 25MG, ONCE DAILY
     Route: 048
     Dates: start: 2015
  4. ENALAPRIL [Concomitant]
     Active Substance: ENALAPRIL
     Indication: Hypertension
     Dosage: 2.5MG, ONCE DAILY
     Route: 048
     Dates: start: 2015
  5. APIXABAN [Concomitant]
     Active Substance: APIXABAN
     Indication: Atrial fibrillation
     Dosage: 5MG, TWICE DAILY
     Route: 048
     Dates: start: 2018
  6. ASPIRIN [Concomitant]
     Active Substance: ASPIRIN
     Indication: Cardiac disorder
     Dosage: 81MG, ONCE DAILY
     Route: 048
     Dates: start: 2004
  7. METFORMIN [Concomitant]
     Active Substance: METFORMIN HYDROCHLORIDE
     Indication: Diabetes mellitus
     Dosage: 500MG, BID
     Route: 048
     Dates: start: 2012
  8. SEMAGLUTIDE [Concomitant]
     Active Substance: SEMAGLUTIDE
     Indication: Diabetes mellitus
     Dosage: 1MG, ONCE EVERY 7 DAYS
     Route: 058
     Dates: start: 2020
  9. EVOLOCUMAB [Concomitant]
     Active Substance: EVOLOCUMAB
     Indication: Hyperlipidaemia
     Dosage: 140MG, ONCE EVERY 14 DAYS,
     Route: 058
     Dates: start: 2024
  10. TRAMADOL [Concomitant]
     Active Substance: TRAMADOL
     Indication: Back pain
     Dosage: 50MG, AS NEEDED (PRN)
     Route: 048
     Dates: start: 20250529
  11. OXYCODONE [Concomitant]
     Active Substance: OXYCODONE
     Indication: Back pain
     Dosage: 5MG, AS NEEDED (PRN)
     Route: 048
     Dates: start: 20250606
  12. BENZONATATE [Concomitant]
     Active Substance: BENZONATATE
     Indication: Cough
     Dosage: 100MG, AS NEEDED (PRN)
     Route: 048
     Dates: start: 20250606
  13. ONDANSETRON [Concomitant]
     Active Substance: ONDANSETRON
     Indication: Nausea
     Dosage: 4 MG, AS NEEDED (PRN), ORALLY DISINTEGRATING TABLET
     Route: 048
     Dates: start: 20250610

REACTIONS (4)
  - Neutrophil count decreased [Not Recovered/Not Resolved]
  - Atrial fibrillation [Not Recovered/Not Resolved]
  - Cardiac arrest [Fatal]
  - Colitis [Not Recovered/Not Resolved]

NARRATIVE: CASE EVENT DATE: 20250618
